FAERS Safety Report 4959534-3 (Version None)
Quarter: 2006Q1

REPORT INFORMATION
  Report Type: 
  Country: None (occurrence: None)
  Receive Date: 20060331
  Receipt Date: 20050708
  Transmission Date: 20060701
  Serious: Yes (Other)
  Sender: FDA-Public Use
  Company Number: FR-GLAXOSMITHKLINE-B0387327A

PATIENT
  Age: 61 Year
  Sex: Male

DRUGS (2)
  1. AUGMENTIN '125' [Suspect]
     Indication: WOUND INFECTION
     Dosage: 1G THREE TIMES PER DAY
     Route: 048
     Dates: start: 20050601, end: 20050601
  2. ACETAMINOPHEN W/ PROPOXYPHENE HCL [Suspect]
     Dosage: 2CAP AS REQUIRED
     Route: 048
     Dates: start: 20050601

REACTIONS (11)
  - ALANINE AMINOTRANSFERASE INCREASED [None]
  - ANOREXIA [None]
  - ASPARTATE AMINOTRANSFERASE INCREASED [None]
  - BLOOD ALKALINE PHOSPHATASE INCREASED [None]
  - BLOOD BILIRUBIN INCREASED [None]
  - CHOLESTASIS [None]
  - GAMMA-GLUTAMYLTRANSFERASE ABNORMAL [None]
  - HEPATOCELLULAR DAMAGE [None]
  - JAUNDICE [None]
  - RASH PRURITIC [None]
  - WEIGHT DECREASED [None]
